FAERS Safety Report 14496764 (Version 1)
Quarter: 2018Q1

REPORT INFORMATION
  Report Type: Spontaneous
  Country: US (occurrence: US)
  Receive Date: 20180207
  Receipt Date: 20180207
  Transmission Date: 20180509
  Serious: No
  Sender: FDA-Public Use
  Company Number: US-PFIZER INC-2018043054

PATIENT
  Age: 59 Year
  Sex: Female
  Weight: 60.77 kg

DRUGS (2)
  1. NEURONTIN [Suspect]
     Active Substance: GABAPENTIN
     Dosage: 400 MG, 2X/DAY (400MG IN THE MORNING AND 400MG IN THE EVENING)
  2. NEURONTIN [Suspect]
     Active Substance: GABAPENTIN
     Dosage: 400 MG, DAILY
     Dates: start: 20180129

REACTIONS (8)
  - Energy increased [Unknown]
  - Fatigue [Unknown]
  - Drug dose omission [Unknown]
  - Anxiety [Unknown]
  - Intentional product use issue [Unknown]
  - Weight increased [Unknown]
  - Insomnia [Unknown]
  - Agitation [Unknown]

NARRATIVE: CASE EVENT DATE: 20180129
